FAERS Safety Report 22014436 (Version 1)
Quarter: 2023Q1

REPORT INFORMATION
  Report Type: Spontaneous
  Country: US (occurrence: US)
  Receive Date: 20230221
  Receipt Date: 20230221
  Transmission Date: 20230417
  Serious: Yes (Hospitalization)
  Sender: FDA-Public Use
  Company Number: US-BRISTOL-MYERS SQUIBB COMPANY-2023-023006

PATIENT
  Age: 50 Year
  Sex: Male

DRUGS (1)
  1. POMALYST [Suspect]
     Active Substance: POMALIDOMIDE
     Indication: Plasma cell myeloma
     Dosage: FREQUENCY: 21
     Dates: start: 20230203

REACTIONS (13)
  - Hypercalcaemia [Unknown]
  - Asthenia [Unknown]
  - Fatigue [Unknown]
  - Fall [Unknown]
  - Tremor [Unknown]
  - Cough [Unknown]
  - Abdominal pain [Unknown]
  - Chromaturia [Unknown]
  - Respiratory rate [Unknown]
  - Dyspnoea [Unknown]
  - Muscle twitching [Unknown]
  - Respiratory disorder [Unknown]
  - Head injury [Unknown]

NARRATIVE: CASE EVENT DATE: 20230207
